FAERS Safety Report 23240156 (Version 1)
Quarter: 2023Q4

REPORT INFORMATION
  Report Type: Spontaneous
  Country: US (occurrence: US)
  Receive Date: 20231129
  Receipt Date: 20231129
  Transmission Date: 20240110
  Serious: Yes (Other)
  Sender: FDA-Public Use
  Company Number: US-BRISTOL-MYERS SQUIBB COMPANY-2023-168962

PATIENT
  Age: 79 Year
  Sex: Male

DRUGS (2)
  1. REVLIMID [Suspect]
     Active Substance: LENALIDOMIDE
     Indication: Plasma cell myeloma
  2. REVLIMID [Suspect]
     Active Substance: LENALIDOMIDE
     Dosage: FREQUENCY: NEVER FILLED
     Route: 048

REACTIONS (6)
  - White blood cell count decreased [Recovered/Resolved]
  - Gastrointestinal disorder [Recovered/Resolved]
  - Red blood cell count decreased [Unknown]
  - Asthenia [Unknown]
  - Fall [Unknown]
  - Discouragement [Unknown]
